FAERS Safety Report 9957403 (Version 1)
Quarter: 2014Q1

REPORT INFORMATION
  Report Type: Report from Study
  Country: US (occurrence: US)
  Receive Date: 20140304
  Receipt Date: 20140304
  Transmission Date: 20141002
  Serious: No
  Sender: FDA-Public Use
  Company Number: US-ABBVIE-13P-163-1094341-00

PATIENT
  Age: 75 Year
  Sex: Female

DRUGS (7)
  1. HUMIRA [Suspect]
     Indication: CROHN^S DISEASE
     Route: 058
     Dates: start: 20121128
  2. WELCHOL [Concomitant]
     Indication: DIARRHOEA
     Dosage: AS REQUIRED
  3. CALCIUM [Concomitant]
     Indication: PRODUCT USED FOR UNKNOWN INDICATION
  4. FISH OIL [Concomitant]
     Indication: PRODUCT USED FOR UNKNOWN INDICATION
  5. FOLIC ACID [Concomitant]
     Indication: PRODUCT USED FOR UNKNOWN INDICATION
  6. B12 [Concomitant]
     Dates: start: 201304
  7. AZATHIOPRINE [Concomitant]
     Indication: GASTROINTESTINAL INFLAMMATION

REACTIONS (3)
  - Tooth extraction [Recovering/Resolving]
  - Medical device complication [Recovering/Resolving]
  - Exostosis [Recovering/Resolving]
